FAERS Safety Report 5538185-6 (Version None)
Quarter: 2007Q4

REPORT INFORMATION
  Report Type: 
  Country: None (occurrence: None)
  Receive Date: 20071207
  Receipt Date: 20071127
  Transmission Date: 20080405
  Serious: Yes (Death)
  Sender: FDA-Public Use
  Company Number: JP-PFIZER INC-2007101645

PATIENT
  Age: 70 Year
  Sex: Female

DRUGS (2)
  1. LIPITOR [Suspect]
     Indication: HYPERLIPIDAEMIA
     Dosage: DAILY DOSE:10MG-FREQ:DAILY
     Route: 048
  2. VALSARTAN [Concomitant]
     Dosage: DAILY DOSE:80MG-FREQ:DAILY

REACTIONS (1)
  - PANCYTOPENIA [None]
